FAERS Safety Report 17913438 (Version 1)
Quarter: 2020Q2

REPORT INFORMATION
  Report Type: Spontaneous
  Country: US (occurrence: US)
  Receive Date: 20200618
  Receipt Date: 20200618
  Transmission Date: 20200714
  Serious: No
  Sender: FDA-Public Use
  Company Number: US-THERAPEUTICSMD-2020TMD02120

PATIENT
  Age: 64 Year
  Sex: Female
  Weight: 41.81 kg

DRUGS (7)
  1. IRON [Concomitant]
     Active Substance: IRON
     Dosage: UKN
  2. PROLIA [Concomitant]
     Active Substance: DENOSUMAB
     Dosage: UNK, 2X/YEAR (EVERY 6 MONTHS)
  3. IMVEXXY [Suspect]
     Active Substance: ESTRADIOL
     Indication: BLOODY DISCHARGE
     Dosage: 10 ?G, 2X/WEEK IN THE MORNING AT FIRST, THEN REALIZED IT SHOULD BE AT BEDTIME
     Route: 067
     Dates: start: 20190624
  4. MULTI-VITAMIN [Concomitant]
     Active Substance: .ALPHA.-TOCOPHEROL ACETATE, DL-\ASCORBIC ACID\CYANOCOBALAMIN\FLUORIDE ION\FOLIC ACID\NIACIN\PYRIDOXINE\RIBOFLAVIN\THIAMINE\VITAMIN A\VITAMIN D
     Dosage: UKN
  5. CALCIUM [Concomitant]
     Active Substance: CALCIUM
     Dosage: 100 MG, 1X/DAY
  6. IMVEXXY [Suspect]
     Active Substance: ESTRADIOL
     Indication: VULVOVAGINAL DRYNESS
  7. IMVEXXY [Suspect]
     Active Substance: ESTRADIOL
     Indication: UTERINE INFECTION

REACTIONS (6)
  - Discomfort [Unknown]
  - Vaginal discharge [Recovering/Resolving]
  - Off label use [Unknown]
  - Vulvovaginal injury [Recovered/Resolved]
  - Vaginal haemorrhage [Recovered/Resolved]
  - Product administration error [Recovered/Resolved]

NARRATIVE: CASE EVENT DATE: 2019
